FAERS Safety Report 25187449 (Version 1)
Quarter: 2025Q2

REPORT INFORMATION
  Report Type: Report from Study
  Country: BR (occurrence: BR)
  Receive Date: 20250411
  Receipt Date: 20250411
  Transmission Date: 20250717
  Serious: Yes (Other)
  Sender: JOHNSON AND JOHNSON
  Company Number: BR-JNJFOC-20250221418

PATIENT
  Age: 51 Year
  Sex: Female
  Weight: 67 kg

DRUGS (6)
  1. SIMPONI [Suspect]
     Active Substance: GOLIMUMAB
     Indication: Ankylosing spondylitis
     Dosage: LAST APPLICATION ON: 22-MAR-2025
     Route: 058
     Dates: start: 202411
  2. SIMPONI [Suspect]
     Active Substance: GOLIMUMAB
     Route: 058
  3. PREGABALIN [Concomitant]
     Active Substance: PREGABALIN
  4. DULOXETINE [Concomitant]
     Active Substance: DULOXETINE
  5. CYCLOBENZAPRINE [Concomitant]
     Active Substance: CYCLOBENZAPRINE
  6. LATANOPROST\TIMOLOL MALEATE [Concomitant]
     Active Substance: LATANOPROST\TIMOLOL MALEATE

REACTIONS (6)
  - Ankylosing spondylitis [Unknown]
  - Laryngeal obstruction [Unknown]
  - Otitis media acute [Unknown]
  - Product storage error [Unknown]
  - Drug ineffective [Unknown]
  - Influenza [Unknown]
